FAERS Safety Report 7980203-X (Version None)
Quarter: 2011Q4

REPORT INFORMATION
  Report Type: 
  Country: None (occurrence: None)
  Receive Date: 20111212
  Receipt Date: 20111130
  Transmission Date: 20120403
  Serious: Yes (Hospitalization)
  Sender: FDA-Public Use
  Company Number: TCI2011A06159

PATIENT
  Age: 42 Year
  Sex: Male

DRUGS (11)
  1. NOVAMINE 15% [Concomitant]
  2. ROZEREM [Suspect]
     Indication: INSOMNIA
     Dosage: 8 MG (8 MG, 1 IN 1 D)
     Route: 048
     Dates: start: 20111108, end: 20111115
  3. ROHYPNOL (FLUNITRAZEPAM) [Concomitant]
  4. CRESTOR [Concomitant]
  5. MYONAL (EPERISONE HYDROCHLORIDE) [Concomitant]
  6. LOXONIN (LOXOPROFEN SODIUM) [Concomitant]
  7. AMLODIN OD (AMLODIPINE BESILATE) [Concomitant]
  8. ALLOPURINOL [Concomitant]
  9. OMEPRAZOLE [Concomitant]
  10. TENORMIN [Concomitant]
  11. CO-DIO (HYDROCHLOROTHIAZIDE, VALSARTAN) [Concomitant]

REACTIONS (11)
  - ABNORMAL BEHAVIOUR [None]
  - HEPATIC STEATOSIS [None]
  - HEPATIC FUNCTION ABNORMAL [None]
  - NAUSEA [None]
  - ALCOHOL USE [None]
  - DELIRIUM TREMENS [None]
  - CONDITION AGGRAVATED [None]
  - SLEEP TALKING [None]
  - HEPATOMEGALY [None]
  - TREMOR [None]
  - HALLUCINATION [None]
